FAERS Safety Report 7436651-X (Version None)
Quarter: 2011Q2

REPORT INFORMATION
  Report Type: 
  Country: None (occurrence: None)
  Receive Date: 20110426
  Receipt Date: 20110414
  Transmission Date: 20111010
  Serious: Yes (Other)
  Sender: FDA-Public Use
  Company Number: US-JNJFOC-20100210464

PATIENT
  Sex: Female
  Weight: 129.73 kg

DRUGS (7)
  1. DURAGESIC-100 [Suspect]
     Dosage: 100UG/HR+100UG/HR+100UG/HR=300UG/HR
     Route: 062
  2. DURAGESIC-100 [Suspect]
     Indication: PAIN
     Dosage: 100UG/HR+100UG/HR+100UG/HR=300UG/HR
     Route: 062
  3. DURAGESIC-100 [Suspect]
     Route: 062
  4. DURAGESIC-100 [Suspect]
     Dosage: 100UG/HR+100UG/HR+100UG/HR=300UG/HR
     Route: 062
  5. SLEEPING PILLS (NOS) [Concomitant]
     Indication: SLEEP DISORDER
     Route: 048
  6. GABAPENTIN [Concomitant]
     Indication: PAIN
     Route: 048
  7. DURAGESIC-100 [Suspect]
     Indication: PRODUCT USED FOR UNKNOWN INDICATION
     Route: 062

REACTIONS (12)
  - FORMICATION [None]
  - WRONG TECHNIQUE IN DRUG USAGE PROCESS [None]
  - CHILLS [None]
  - PRODUCT QUALITY ISSUE [None]
  - PAIN [None]
  - HEADACHE [None]
  - INTENTIONAL DRUG MISUSE [None]
  - VISUAL ACUITY REDUCED [None]
  - INCORRECT DOSE ADMINISTERED [None]
  - HYPERHIDROSIS [None]
  - CATARACT [None]
  - WITHDRAWAL SYNDROME [None]
